FAERS Safety Report 8421026-7 (Version None)
Quarter: 2012Q2

REPORT INFORMATION
  Report Type: 
  Country: None (occurrence: None)
  Receive Date: 20120608
  Receipt Date: 20120529
  Transmission Date: 20120825
  Serious: Yes (Other)
  Sender: FDA-Public Use
  Company Number: CA-JNJFOC-20120520713

PATIENT
  Sex: Female
  Weight: 67.6 kg

DRUGS (6)
  1. REMICADE [Suspect]
     Indication: RHEUMATOID ARTHRITIS
     Route: 042
     Dates: start: 20050617
  2. METHOTREXATE [Concomitant]
     Route: 065
  3. SYNTHROID [Concomitant]
     Route: 065
  4. ACETAMINOPHEN [Concomitant]
     Route: 065
  5. BENADRYL [Concomitant]
     Route: 048
  6. FOLIC ACID [Concomitant]
     Route: 065

REACTIONS (1)
  - NEPHROLITHIASIS [None]
